FAERS Safety Report 19654730 (Version 2)
Quarter: 2021Q3

REPORT INFORMATION
  Report Type: Report from Study
  Country: None (occurrence: US)
  Receive Date: 20210804
  Receipt Date: 20210806
  Transmission Date: 20211014
  Serious: Yes (Other)
  Sender: FDA-Public Use
  Company Number: US-ABBVIE-21K-163-4019196-00

PATIENT
  Age: 80 Year
  Sex: Female
  Weight: 51.3 kg

DRUGS (1)
  1. CREON [Suspect]
     Active Substance: PANCRELIPASE AMYLASE\PANCRELIPASE LIPASE\PANCRELIPASE PROTEASE
     Indication: PRODUCT USED FOR UNKNOWN INDICATION
     Dosage: 2 CAPSULE IN THE MORNING, 1 AT LUNCH, 1 AT DINNER, 1 CAPSULE EVERY SNACKS
     Route: 048

REACTIONS (4)
  - Feeding disorder [Unknown]
  - Weight decreased [Unknown]
  - Pain [Unknown]
  - Neoplasm malignant [Unknown]

NARRATIVE: CASE EVENT DATE: 20210729
